FAERS Safety Report 9095683 (Version 2)
Quarter: 2013Q1

REPORT INFORMATION
  Report Type: Spontaneous
  Country: DE (occurrence: CA)
  Receive Date: 20130219
  Receipt Date: 20130311
  Transmission Date: 20140127
  Serious: Yes (Hospitalization)
  Sender: FDA-Public Use
  Company Number: CA-FRI-1000042710

PATIENT
  Age: 70 Year
  Sex: Female

DRUGS (1)
  1. ROFLUMILAST [Suspect]
     Dosage: 500 MCG
     Route: 048

REACTIONS (1)
  - Oxygen consumption decreased [Recovered/Resolved]
